FAERS Safety Report 19196667 (Version 2)
Quarter: 2021Q2

REPORT INFORMATION
  Report Type: Spontaneous
  Country: CO (occurrence: CO)
  Receive Date: 20210429
  Receipt Date: 20210602
  Transmission Date: 20210717
  Serious: Yes (Hospitalization, Other)
  Sender: FDA-Public Use
  Company Number: CO-NOVOPROD-806365

PATIENT
  Age: 47 Year
  Sex: Male

DRUGS (3)
  1. EMICIZUMAB. [Concomitant]
     Active Substance: EMICIZUMAB
     Indication: HAEMOPHILIA A WITH ANTI FACTOR VIII
     Route: 065
  2. NOVOSEVEN RT [Suspect]
     Active Substance: COAGULATION FACTOR VIIA RECOMBINANT HUMAN
     Indication: HAEMOPHILIA A WITH ANTI FACTOR VIII
     Dosage: 6 MG EVERY 3 HOURS
     Route: 042
  3. NOVOSEVEN RT [Suspect]
     Active Substance: COAGULATION FACTOR VIIA RECOMBINANT HUMAN
     Indication: PROPHYLAXIS

REACTIONS (2)
  - Haemoperitoneum [Recovered/Resolved]
  - Subcapsular hepatic haematoma [Not Recovered/Not Resolved]
